FAERS Safety Report 15276777 (Version 1)
Quarter: 2018Q3

REPORT INFORMATION
  Report Type: Report from Study
  Country: US (occurrence: US)
  Receive Date: 20180814
  Receipt Date: 20180814
  Transmission Date: 20181010
  Serious: Yes (Other)
  Sender: FDA-Public Use
  Company Number: US-TESARO, INC-US-2018TSO01870

PATIENT
  Sex: Female

DRUGS (5)
  1. ZEJULA [Suspect]
     Active Substance: NIRAPARIB
     Dosage: 200 MG, QD
     Route: 048
  2. ZEJULA [Suspect]
     Active Substance: NIRAPARIB
     Dosage: 100 MG, UNK
     Route: 065
  3. ZEJULA [Suspect]
     Active Substance: NIRAPARIB
     Dosage: 200 MG, QD
     Route: 048
     Dates: start: 20170720
  4. ZEJULA [Suspect]
     Active Substance: NIRAPARIB
     Indication: FALLOPIAN TUBE CANCER
     Dosage: 300 MG, QD
     Route: 048
     Dates: start: 20170615
  5. ZEJULA [Suspect]
     Active Substance: NIRAPARIB
     Dosage: 200 MG QD
     Route: 048

REACTIONS (7)
  - Weight decreased [Not Recovered/Not Resolved]
  - White blood cell count decreased [Unknown]
  - Lymphadenopathy [Not Recovered/Not Resolved]
  - Emotional distress [Unknown]
  - Fatigue [Not Recovered/Not Resolved]
  - Hot flush [Not Recovered/Not Resolved]
  - Carbohydrate antigen 125 increased [Not Recovered/Not Resolved]
